FAERS Safety Report 8487028-X (Version None)
Quarter: 2012Q3

REPORT INFORMATION
  Report Type: 
  Country: None (occurrence: None)
  Receive Date: 20120704
  Receipt Date: 20120629
  Transmission Date: 20120928
  Serious: Yes (Hospitalization)
  Sender: FDA-Public Use
  Company Number: PHFR2012GB003674

PATIENT
  Sex: Female

DRUGS (2)
  1. LITHIUM CARBONATE [Concomitant]
  2. CLOZARIL [Suspect]
     Dosage: UNK
     Route: 048
     Dates: start: 20120529, end: 20120618

REACTIONS (8)
  - BUNDLE BRANCH BLOCK RIGHT [None]
  - ELECTROCARDIOGRAM QT PROLONGED [None]
  - BLOOD UREA ABNORMAL [None]
  - WHITE BLOOD CELL COUNT INCREASED [None]
  - RENAL FAILURE [None]
  - ELECTROLYTE IMBALANCE [None]
  - EOSINOPHIL COUNT INCREASED [None]
  - RENAL DISORDER [None]
